FAERS Safety Report 4371315-0 (Version None)
Quarter: 2004Q2

REPORT INFORMATION
  Report Type: 
  Country: None (occurrence: None)
  Receive Date: 20040603
  Receipt Date: 20040518
  Transmission Date: 20050107
  Serious: Yes (Hospitalization, Disabling, Congenital Anomaly)
  Sender: FDA-Public Use
  Company Number: 04P-163-0251846-00

PATIENT
  Age: 1 Day
  Sex: Male

DRUGS (2)
  1. NORVIR [Suspect]
     Indication: DRUG EXPOSURE DURING PREGNANCY
  2. PRENATAL MEDICATIONS [Suspect]

REACTIONS (14)
  - ALOPECIA [None]
  - ANOXIA [None]
  - CEREBRAL VENTRICLE DILATATION [None]
  - CONGENITAL CEREBRAL CYST [None]
  - DRUG EXPOSURE DURING PREGNANCY [None]
  - FEEDING PROBLEM IN NEWBORN [None]
  - HYPOTONIA NEONATAL [None]
  - LUNG DISORDER [None]
  - MECONIUM STAIN [None]
  - NEONATAL HYPOXIA [None]
  - OLIGOHYDRAMNIOS [None]
  - PERIVENTRICULAR LEUKOMALACIA [None]
  - PREMATURE BABY [None]
  - SOCIAL PROBLEM [None]
